FAERS Safety Report 7649471-8 (Version None)
Quarter: 2011Q3

REPORT INFORMATION
  Report Type: 
  Country: None (occurrence: None)
  Receive Date: 20110802
  Receipt Date: 20100203
  Transmission Date: 20111222
  Serious: No
  Sender: FDA-Public Use
  Company Number: US-BAYER-201013432NA

PATIENT
  Sex: Female
  Weight: 68.182 kg

DRUGS (3)
  1. MIRENA [Suspect]
     Indication: CONTRACEPTION
     Dosage: 20 ?G/D, CONT
     Route: 015
     Dates: start: 20040101, end: 20080101
  2. MIRENA [Suspect]
     Dosage: 20 ?G/D, UNK
     Route: 015
     Dates: start: 20081001
  3. LITHIUM CARBONATE [Concomitant]

REACTIONS (6)
  - DEVICE EXPULSION [None]
  - HYPOMENORRHOEA [None]
  - MEDICAL DEVICE DISCOMFORT [None]
  - ABDOMINAL PAIN [None]
  - MENORRHAGIA [None]
  - MOOD SWINGS [None]
